FAERS Safety Report 8810033 (Version 2)
Quarter: 2013Q1

REPORT INFORMATION
  Report Type: Spontaneous
  Country: US (occurrence: US)
  Receive Date: 20120926
  Receipt Date: 20130128
  Transmission Date: 20140127
  Serious: Yes (Hospitalization)
  Sender: FDA-Public Use
  Company Number: US-GLAXOSMITHKLINE-A0791878A

PATIENT
  Sex: Female
  Weight: 182 kg

DRUGS (1)
  1. AVANDIA [Suspect]
     Indication: DIABETES MELLITUS
     Route: 048
     Dates: start: 200312, end: 200706

REACTIONS (9)
  - Cardiac failure congestive [Unknown]
  - Pneumonia [Unknown]
  - Asthma [Unknown]
  - Pericarditis [Unknown]
  - Cardiovascular disorder [Unknown]
  - Injury [Unknown]
  - Bronchitis [Unknown]
  - Cardiomyopathy [Unknown]
  - Atrial fibrillation [Unknown]
